FAERS Safety Report 20404637 (Version 1)
Quarter: 2022Q1

REPORT INFORMATION
  Report Type: Spontaneous
  Country: US (occurrence: None)
  Receive Date: 20220128
  Receipt Date: 20220128
  Transmission Date: 20220424
  Serious: No
  Sender: FDA-Public Use
  Company Number: None

PATIENT
  Age: 34 Year
  Sex: Female
  Weight: 127 kg

DRUGS (1)
  1. CASIRIVIMAB\IMDEVIMAB [Suspect]
     Active Substance: CASIRIVIMAB\IMDEVIMAB

REACTIONS (10)
  - Rash [None]
  - Cough [None]
  - Dyspnoea [None]
  - Cardiac flutter [None]
  - Hyperhidrosis [None]
  - Cold sweat [None]
  - Flushing [None]
  - Infusion related reaction [None]
  - Pruritus [None]
  - Dizziness [None]

NARRATIVE: CASE EVENT DATE: 20210718
